FAERS Safety Report 9029315 (Version 2)
Quarter: 2013Q2

REPORT INFORMATION
  Report Type: Spontaneous
  Country: DE (occurrence: DE)
  Receive Date: 20130124
  Receipt Date: 20130501
  Transmission Date: 20140414
  Serious: Yes (Hospitalization, Other)
  Sender: FDA-Public Use
  Company Number: US-UCBSA-075744

PATIENT
  Age: 50 Year
  Sex: Female
  Weight: 63 kg

DRUGS (10)
  1. LEVETIRACETAM [Suspect]
     Indication: EPILEPSY
     Route: 048
     Dates: start: 20120924, end: 20121206
  2. LEVETIRACETAM [Suspect]
     Indication: EPILEPSY
     Route: 048
     Dates: start: 20121207, end: 20121230
  3. LEVETIRACETAM [Suspect]
     Indication: EPILEPSY
     Route: 048
     Dates: end: 20120923
  4. LORAZEPAM [Concomitant]
     Indication: RESTLESSNESS
     Route: 048
     Dates: start: 20121207, end: 20121219
  5. LORAZEPAM [Concomitant]
     Indication: ANXIETY
     Route: 048
     Dates: start: 20121207, end: 20121219
  6. RISPERIDON [Concomitant]
     Indication: PSYCHOTIC DISORDER
     Route: 048
     Dates: start: 20121207, end: 20121230
  7. ASS 100 [Concomitant]
     Indication: HAEMODILUTION
     Route: 048
     Dates: start: 2011, end: 20121230
  8. METOPROLOL [Concomitant]
     Indication: HYPERTENSION
     Route: 048
     Dates: start: 2011
  9. PRADAXA [Concomitant]
     Indication: HAEMODILUTION
     Route: 048
     Dates: start: 20121230
  10. PRADAXA [Concomitant]
     Indication: ATRIAL FIBRILLATION
     Route: 048
     Dates: start: 20121230

REACTIONS (4)
  - Status epilepticus [Recovering/Resolving]
  - Psychotic disorder [Recovered/Resolved]
  - Fatigue [Unknown]
  - Somnolence [Unknown]
